FAERS Safety Report 7261483-5 (Version None)
Quarter: 2011Q1

REPORT INFORMATION
  Report Type: 
  Country: None (occurrence: None)
  Receive Date: 20110130
  Receipt Date: 20100930
  Transmission Date: 20110831
  Serious: No
  Sender: FDA-Public Use
  Company Number: US-ABBOTT-10P-163-0675041-00

PATIENT
  Age: 51 Year
  Sex: Female

DRUGS (8)
  1. MOBIC [Concomitant]
     Indication: OSTEOARTHRITIS
     Route: 048
  2. HUMIRA [Suspect]
     Indication: RHEUMATOID ARTHRITIS
     Dates: start: 20100601
  3. TRAVATAN Z [Concomitant]
     Indication: PRODUCT USED FOR UNKNOWN INDICATION
  4. LOLESTRINE 1.5/30 BIRTH CONTROL PILLS [Concomitant]
     Indication: HOT FLUSH
  5. ALPHAGAN [Concomitant]
     Indication: PRODUCT USED FOR UNKNOWN INDICATION
  6. TIMINOL [Concomitant]
     Indication: PRODUCT USED FOR UNKNOWN INDICATION
  7. GLAUCOMA EYE DROPS [Concomitant]
     Indication: PRODUCT USED FOR UNKNOWN INDICATION
     Route: 047
  8. RHEUMATREX [Concomitant]
     Indication: RHEUMATOID ARTHRITIS

REACTIONS (4)
  - RHEUMATOID ARTHRITIS [None]
  - TENDON PAIN [None]
  - NECK PAIN [None]
  - ARTHRALGIA [None]
